FAERS Safety Report 9834013 (Version 2)
Quarter: 2014Q1

REPORT INFORMATION
  Report Type: Report from Study
  Country: TW (occurrence: TW)
  Receive Date: 20140122
  Receipt Date: 20140203
  Transmission Date: 20141002
  Serious: Yes (Hospitalization, Other)
  Sender: FDA-Public Use
  Company Number: TW-ROCHE-1336067

PATIENT
  Age: 72 Year
  Sex: Male
  Weight: 76 kg

DRUGS (11)
  1. RANIBIZUMAB [Suspect]
     Indication: AGE-RELATED MACULAR DEGENERATION
     Route: 050
     Dates: start: 20130117
  2. RANIBIZUMAB [Suspect]
     Indication: RETINAL VEIN OCCLUSION
     Route: 050
     Dates: start: 20130408
  3. RANIBIZUMAB [Suspect]
     Dosage: LAST DOSE PRIOR TO MACULAR EDEMA
     Route: 050
     Dates: start: 20131127
  4. RANIBIZUMAB [Suspect]
     Route: 050
     Dates: start: 20140106, end: 20140106
  5. ACARBOSE [Concomitant]
  6. ATENOLOL [Concomitant]
  7. BUMETANIDE [Concomitant]
  8. DOXAZOSIN [Concomitant]
  9. GLICLAZIDE [Concomitant]
  10. NIFEDIPINE [Concomitant]
  11. SITAGLIPTIN [Concomitant]

REACTIONS (5)
  - Pleural effusion [Recovered/Resolved]
  - Nephrotic syndrome [Recovered/Resolved]
  - Acute pulmonary oedema [Recovered/Resolved]
  - Bronchitis [Recovered/Resolved]
  - Macular oedema [Recovered/Resolved]
